FAERS Safety Report 16461752 (Version 2)
Quarter: 2019Q3

REPORT INFORMATION
  Report Type: Spontaneous
  Country: US (occurrence: US)
  Receive Date: 20190621
  Receipt Date: 20190710
  Transmission Date: 20191004
  Serious: No
  Sender: FDA-Public Use
  Company Number: US-TEVA-2019-US-1063008

PATIENT
  Age: 53 Year
  Sex: Female
  Weight: 64 kg

DRUGS (3)
  1. COPAXONE [Suspect]
     Active Substance: GLATIRAMER ACETATE
     Indication: MULTIPLE SCLEROSIS
     Dosage: DAILY
     Dates: start: 201602, end: 20190520
  2. CELEXA [Concomitant]
     Active Substance: CITALOPRAM HYDROBROMIDE
  3. COPAXONE [Suspect]
     Active Substance: GLATIRAMER ACETATE

REACTIONS (4)
  - Skin exfoliation [Unknown]
  - Injection site urticaria [Unknown]
  - Injection site scab [Unknown]
  - Injection site erythema [Unknown]

NARRATIVE: CASE EVENT DATE: 2019
